FAERS Safety Report 7958971-2 (Version None)
Quarter: 2011Q4

REPORT INFORMATION
  Report Type: 
  Country: None (occurrence: None)
  Receive Date: 20111130
  Receipt Date: 20111115
  Transmission Date: 20120403
  Serious: Yes (Hospitalization, Other)
  Sender: FDA-Public Use
  Company Number: INT_00039_2011

PATIENT
  Age: 70 Year
  Sex: Female

DRUGS (2)
  1. CEFEPIME [Suspect]
     Indication: FEBRILE NEUTROPENIA
     Dosage: (2 G, DAILY)
  2. PHENYTOIN (3 YEARS UNTIL CONTINUING) [Concomitant]

REACTIONS (11)
  - MYOKYMIA [None]
  - CONVULSIVE THRESHOLD LOWERED [None]
  - DYSARTHRIA [None]
  - NEUROTOXICITY [None]
  - AGITATION [None]
  - MYOCLONUS [None]
  - STATUS EPILEPTICUS [None]
  - COGNITIVE DISORDER [None]
  - ELECTROENCEPHALOGRAM ABNORMAL [None]
  - MENTAL STATUS CHANGES [None]
  - METABOLIC DISORDER [None]
